FAERS Safety Report 13778620 (Version 2)
Quarter: 2018Q2

REPORT INFORMATION
  Report Type: Spontaneous
  Country: None (occurrence: FR)
  Receive Date: 20170721
  Receipt Date: 20180404
  Transmission Date: 20180711
  Serious: Yes (Hospitalization)
  Sender: FDA-Public Use
  Company Number: FR-MERZ NORTH AMERICA, INC.-17MRZ-00230

PATIENT
  Age: 65 Year
  Sex: Female

DRUGS (5)
  1. ASCLERA [Suspect]
     Active Substance: POLIDOCANOL
     Dosage: 2.5ML DILUTED TO 0.3% IN EACH LEG
     Route: 042
     Dates: start: 20160321, end: 20160321
  2. SALICYLATED VASELINE 10% [Concomitant]
  3. PHARMACEUTICAL VASELINE [Concomitant]
  4. MELADININE [Concomitant]
  5. ASCLERA [Suspect]
     Active Substance: POLIDOCANOL
     Indication: VARICOSE VEIN
     Dosage: 2.5ML DILUTED TO 1.5% IN EACH LEG
     Route: 042
     Dates: start: 20160208, end: 20160208

REACTIONS (1)
  - Systemic scleroderma [Recovered/Resolved]

NARRATIVE: CASE EVENT DATE: 201605
